FAERS Safety Report 5525280-0 (Version None)
Quarter: 2007Q4

REPORT INFORMATION
  Report Type: 
  Country: None (occurrence: None)
  Receive Date: 20071120
  Receipt Date: 20071106
  Transmission Date: 20080405
  Serious: Yes (Disabling)
  Sender: FDA-Public Use
  Company Number: 2007-04966

PATIENT
  Age: 48 Year
  Sex: Female

DRUGS (3)
  1. TRELSTAR DEPOT [Suspect]
     Indication: HORMONE THERAPY
     Dosage: 3.75 MG, INTRAMUSCULAR
     Route: 030
     Dates: start: 20060816, end: 20071011
  2. EXEMESTANE [Suspect]
     Indication: HORMONE THERAPY
     Dosage: 25 MG, ORAL
     Route: 048
     Dates: start: 20061109, end: 20071028
  3. CHEMOTHERAPY [Concomitant]

REACTIONS (3)
  - JOINT STIFFNESS [None]
  - LIMB DISCOMFORT [None]
  - PAIN [None]
